FAERS Safety Report 25980768 (Version 1)
Quarter: 2025Q4

REPORT INFORMATION
  Report Type: Report from Study
  Country: CA (occurrence: CA)
  Receive Date: 20251030
  Receipt Date: 20251030
  Transmission Date: 20260118
  Serious: Yes (Hospitalization)
  Sender: JOHNSON AND JOHNSON
  Company Number: CA-JNJFOC-20240260953

PATIENT
  Age: 73 Year
  Sex: Male
  Weight: 74.84 kg

DRUGS (2)
  1. TREMFYA [Suspect]
     Active Substance: GUSELKUMAB
     Indication: Psoriasis
     Dosage: DATE OF LAST ADMINISTRATION PRIOR TO THE ONSET OF THE EVENT WAS ON 12-NOV-2023
     Route: 065
     Dates: start: 20181024, end: 20231121
  2. TREMFYA [Suspect]
     Active Substance: GUSELKUMAB
     Route: 065
     Dates: start: 20181024, end: 20240507

REACTIONS (5)
  - Ascites [Unknown]
  - Hyponatraemia [Unknown]
  - Urinary retention [Recovered/Resolved with Sequelae]
  - Dehydration [Unknown]
  - Fall [Unknown]

NARRATIVE: CASE EVENT DATE: 20221020
